FAERS Safety Report 17589429 (Version 1)
Quarter: 2020Q1

REPORT INFORMATION
  Report Type: Spontaneous
  Country: US (occurrence: US)
  Receive Date: 20200327
  Receipt Date: 20200327
  Transmission Date: 20200409
  Serious: No
  Sender: FDA-Public Use
  Company Number: US-ALLERGAN-1939007US

PATIENT
  Age: 94 Year
  Sex: Male

DRUGS (4)
  1. DORZOLAMIDE [Concomitant]
     Active Substance: DORZOLAMIDE
  2. LUMIGAN [Suspect]
     Active Substance: BIMATOPROST
     Indication: GLAUCOMA
     Dosage: 1 GTT, QHS
     Route: 047
     Dates: start: 2014
  3. LUMIGAN [Suspect]
     Active Substance: BIMATOPROST
     Indication: OPTIC NERVE DISORDER
  4. HEART RELATED MEDICATION [Concomitant]

REACTIONS (3)
  - Product packaging quantity issue [Unknown]
  - Product dose omission [Unknown]
  - Off label use [Unknown]

NARRATIVE: CASE EVENT DATE: 20190920
